FAERS Safety Report 25385603 (Version 2)
Quarter: 2025Q2

REPORT INFORMATION
  Report Type: Spontaneous
  Country: JP (occurrence: JP)
  Receive Date: 20250602
  Receipt Date: 20250624
  Transmission Date: 20250717
  Serious: Yes (Other)
  Sender: DAIICHI
  Company Number: JP-DSJP-DS-2025-144077-JP

PATIENT
  Age: 85 Year
  Sex: Female
  Weight: 64 kg

DRUGS (1)
  1. EDOXABAN TOSYLATE [Suspect]
     Active Substance: EDOXABAN TOSYLATE
     Indication: Product used for unknown indication
     Dosage: 30 MG, QD
     Route: 048

REACTIONS (1)
  - Cerebral infarction [Unknown]
